FAERS Safety Report 18502015 (Version 2)
Quarter: 2021Q1

REPORT INFORMATION
  Report Type: Spontaneous
  Country: US (occurrence: US)
  Receive Date: 20201113
  Receipt Date: 20210301
  Transmission Date: 20210419
  Serious: No
  Sender: FDA-Public Use
  Company Number: US-SA-2020SA320370

PATIENT
  Age: 28 Year
  Sex: Female

DRUGS (3)
  1. CEREZYME [Suspect]
     Active Substance: IMIGLUCERASE
     Dosage: 5600 IU, QOW
     Route: 041
  2. NA [Concomitant]
     Active Substance: SODIUM
  3. CEREZYME [Suspect]
     Active Substance: IMIGLUCERASE
     Indication: GAUCHER^S DISEASE
     Dosage: 60 UNITS PER KG , QOW
     Route: 041

REACTIONS (1)
  - Drug ineffective [Unknown]
